FAERS Safety Report 9280013 (Version 1)
Quarter: 2013Q2

REPORT INFORMATION
  Report Type: Spontaneous
  Country: US (occurrence: None)
  Receive Date: 20130506
  Receipt Date: 20130506
  Transmission Date: 20140414
  Serious: Yes (Life-Threatening, Hospitalization)
  Sender: FDA-Public Use
  Company Number: None

PATIENT
  Age: 72 Year
  Sex: Male

DRUGS (1)
  1. STIVARGA [Suspect]
     Indication: COLON CANCER
     Dosage: 120MG  ONCE DAILY ORAL
     Route: 048
     Dates: start: 20130226, end: 20130419

REACTIONS (3)
  - Pain in extremity [None]
  - Chest pain [None]
  - Aortic dissection [None]
